FAERS Safety Report 5825379-5 (Version None)
Quarter: 2008Q3

REPORT INFORMATION
  Report Type: 
  Country: None (occurrence: None)
  Receive Date: 20080725
  Receipt Date: 20080725
  Transmission Date: 20090109
  Serious: Yes (Death)
  Sender: FDA-Public Use
  Company Number: None

PATIENT
  Age: 74 Year
  Sex: Female
  Weight: 48.0813 kg

DRUGS (2)
  1. ENBREL [Suspect]
     Indication: RHEUMATOID ARTHRITIS
     Dosage: 1 INJECTION WEEKLY SUBDERMAL
     Route: 059
     Dates: start: 20080403, end: 20080510
  2. RITUXAN [Suspect]
     Indication: RHEUMATOID ARTHRITIS
     Dosage: IV INFUSIION BY PRN IV DRIP
     Route: 041
     Dates: start: 20080605, end: 20080605

REACTIONS (4)
  - ADVERSE DRUG REACTION [None]
  - GENERAL PHYSICAL HEALTH DETERIORATION [None]
  - RESPIRATORY ARREST [None]
  - RIB FRACTURE [None]
